FAERS Safety Report 9860745 (Version 2)
Quarter: 2014Q1

REPORT INFORMATION
  Report Type: Spontaneous
  Country: US (occurrence: US)
  Receive Date: 20140202
  Receipt Date: 20140202
  Transmission Date: 20141002
  Serious: No
  Sender: FDA-Public Use
  Company Number: US-ALLERGAN-1300865US

PATIENT
  Sex: Female

DRUGS (8)
  1. BOTOX COSMETIC [Suspect]
     Indication: SKIN WRINKLING
     Dosage: 25 UNITS, SINGLE
     Route: 030
     Dates: start: 20130118, end: 20130118
  2. BOTOX COSMETIC [Suspect]
     Indication: SKIN WRINKLING
     Dosage: 30 UNITS, SINGLE
     Route: 030
     Dates: start: 20130118, end: 20130118
  3. BOTOX COSMETIC [Suspect]
     Indication: SKIN WRINKLING
     Dosage: 4 UNITS, SINGLE
     Route: 030
     Dates: start: 20130118, end: 20130118
  4. BOTOX COSMETIC [Suspect]
     Indication: SKIN WRINKLING
     Dosage: 10 UNK, SINGLE
     Route: 030
     Dates: start: 20130118, end: 20130118
  5. EFFEXOR                            /01233801/ [Concomitant]
     Indication: PRODUCT USED FOR UNKNOWN INDICATION
  6. LEVOTHYROXINE [Concomitant]
     Indication: PRODUCT USED FOR UNKNOWN INDICATION
  7. TRIAMTERENE [Concomitant]
     Indication: PRODUCT USED FOR UNKNOWN INDICATION
  8. SPIRONOLACTONE [Concomitant]
     Indication: PRODUCT USED FOR UNKNOWN INDICATION

REACTIONS (4)
  - Wrong technique in drug usage process [Unknown]
  - Off label use [Unknown]
  - Off label use [Unknown]
  - Drug ineffective [Unknown]
